FAERS Safety Report 12755305 (Version 1)
Quarter: 2016Q3

REPORT INFORMATION
  Report Type: Spontaneous
  Country: US (occurrence: US)
  Receive Date: 20160916
  Receipt Date: 20160916
  Transmission Date: 20161109
  Serious: No
  Sender: FDA-Public Use
  Company Number: US-CELGENEUS-USA-2016092761

PATIENT
  Age: 53 Year
  Sex: Female

DRUGS (2)
  1. OTEZLA [Suspect]
     Active Substance: APREMILAST
     Indication: PSORIATIC ARTHROPATHY
     Dosage: 60 MILLIGRAM
     Route: 048
  2. TRETINOIN. [Concomitant]
     Active Substance: TRETINOIN
     Indication: PRODUCT USED FOR UNKNOWN INDICATION
     Route: 065
     Dates: start: 20160604

REACTIONS (3)
  - Diarrhoea [Unknown]
  - Drug dose omission [Unknown]
  - Condition aggravated [Unknown]

NARRATIVE: CASE EVENT DATE: 201608
